FAERS Safety Report 16271881 (Version 1)
Quarter: 2019Q2

REPORT INFORMATION
  Report Type: Other
  Country: IT (occurrence: IT)
  Receive Date: 20190506
  Receipt Date: 20190506
  Transmission Date: 20190711
  Serious: Yes (Hospitalization, Other)
  Sender: FDA-Public Use
  Company Number: IT-DEXPHARM-20190293

PATIENT
  Age: 51 Year
  Sex: Female

DRUGS (2)
  1. PYLERA [Suspect]
     Active Substance: BISMUTH SUBCITRATE POTASSIUM\METRONIDAZOLE\TETRACYCLINE HYDROCHLORIDE
     Indication: HELICOBACTER GASTRITIS
     Dosage: 140/125/125 MG
  2. OMEPRAZOLE. [Interacting]
     Active Substance: OMEPRAZOLE
     Indication: HELICOBACTER GASTRITIS
     Dosage: DAILY DOSE: 40 MG MILLGRAM(S) EVERY DAYS

REACTIONS (3)
  - Hypoaesthesia [Recovering/Resolving]
  - Drug interaction [Unknown]
  - Neurotoxicity [Recovering/Resolving]
